FAERS Safety Report 18839759 (Version 3)
Quarter: 2021Q2

REPORT INFORMATION
  Report Type: Report from Study
  Country: US (occurrence: US)
  Receive Date: 20210203
  Receipt Date: 20210416
  Transmission Date: 20210717
  Serious: Yes (Hospitalization)
  Sender: FDA-Public Use
  Company Number: US-AGIOS-2101US02487

PATIENT

DRUGS (1)
  1. TIBSOVO [Suspect]
     Active Substance: IVOSIDENIB
     Indication: ACUTE MYELOID LEUKAEMIA
     Dosage: 250 MILLIGRAM, 2 TABLETS (500 MG), QD
     Route: 048
     Dates: start: 202004, end: 202103

REACTIONS (14)
  - Epistaxis [Unknown]
  - Platelet count decreased [Unknown]
  - Arthralgia [Unknown]
  - Vomiting [Unknown]
  - Rash [Unknown]
  - Haemoglobin decreased [Unknown]
  - Nausea [Unknown]
  - Pain [Unknown]
  - Fall [Unknown]
  - Rash erythematous [Unknown]
  - Abdominal pain [Unknown]
  - Chromaturia [Unknown]
  - Dyspnoea [Unknown]
  - Rash macular [Unknown]

NARRATIVE: CASE EVENT DATE: 20210409
